FAERS Safety Report 14542578 (Version 1)
Quarter: 2018Q1

REPORT INFORMATION
  Report Type: Spontaneous
  Country: IT (occurrence: IT)
  Receive Date: 20180216
  Receipt Date: 20180216
  Transmission Date: 20180509
  Serious: Yes (Hospitalization)
  Sender: FDA-Public Use
  Company Number: IT-OTSUKA-DJ201400590

PATIENT
  Age: 40 Year
  Sex: Female

DRUGS (4)
  1. DEPAKINE CHRONO [Suspect]
     Active Substance: VALPROATE SODIUM
     Indication: PRODUCT USED FOR UNKNOWN INDICATION
     Dosage: UNK
     Route: 048
     Dates: start: 20131216
  2. PAROXETINE. [Suspect]
     Active Substance: PAROXETINE
     Indication: DEPRESSION
     Dosage: TABLETS.THERAPY TO 16DEC13
     Route: 048
     Dates: start: 20131216
  3. ABILIFY [Suspect]
     Active Substance: ARIPIPRAZOLE
     Indication: PRODUCT USED FOR UNKNOWN INDICATION
     Dosage: 60 MG, UNK
     Route: 048
     Dates: start: 20131216
  4. DELORAZEPAM [Suspect]
     Active Substance: DELORAZEPAM
     Indication: DEPRESSION
     Dosage: UNK
     Route: 048
     Dates: start: 20131216

REACTIONS (5)
  - Abdominal pain [Recovering/Resolving]
  - Urinary incontinence [Unknown]
  - Drug abuse [Unknown]
  - Sopor [Recovering/Resolving]
  - Anal incontinence [Unknown]

NARRATIVE: CASE EVENT DATE: 20131216
